FAERS Safety Report 24129404 (Version 3)
Quarter: 2024Q3

REPORT INFORMATION
  Report Type: Spontaneous
  Country: US (occurrence: US)
  Receive Date: 20240723
  Receipt Date: 20240925
  Transmission Date: 20241017
  Serious: No
  Sender: BRISTOL MYERS SQUIBB
  Company Number: US-BRISTOL-MYERS SQUIBB COMPANY-2024-116510

PATIENT
  Age: 74 Year
  Sex: Female

DRUGS (5)
  1. POMALYST [Suspect]
     Active Substance: POMALIDOMIDE
     Indication: Plasma cell myeloma
     Route: 048
     Dates: start: 202405
  2. POMALYST [Suspect]
     Active Substance: POMALIDOMIDE
     Route: 048
     Dates: start: 202405
  3. POMALYST [Suspect]
     Active Substance: POMALIDOMIDE
  4. POMALYST [Suspect]
     Active Substance: POMALIDOMIDE
     Route: 048
     Dates: start: 202405
  5. REVLIMID [Concomitant]
     Active Substance: LENALIDOMIDE
     Indication: Product used for unknown indication

REACTIONS (7)
  - Swollen tongue [Recovered/Resolved]
  - Muscle spasms [Unknown]
  - Speech disorder [Unknown]
  - Fatigue [Unknown]
  - Ocular hyperaemia [Unknown]
  - Off label use [Unknown]
  - Drug hypersensitivity [Unknown]
